FAERS Safety Report 10234021 (Version 1)
Quarter: 2014Q2

REPORT INFORMATION
  Report Type: Spontaneous
  Country: CN (occurrence: CN)
  Receive Date: 20140612
  Receipt Date: 20140612
  Transmission Date: 20141212
  Serious: Yes (Other)
  Sender: FDA-Public Use
  Company Number: CN-ELI_LILLY_AND_COMPANY-CN201406004007

PATIENT
  Age: 29 Year
  Sex: Male

DRUGS (2)
  1. ZYPREXA [Suspect]
     Indication: SEDATION
     Dosage: 5 MG, QD
     Route: 048
     Dates: start: 20130401, end: 20130417
  2. CYMBALTA [Suspect]
     Indication: EMOTIONAL DISORDER
     Dosage: 60 MG, QD
     Route: 048
     Dates: start: 20130407, end: 20130428

REACTIONS (3)
  - Aspartate aminotransferase increased [Recovering/Resolving]
  - Alanine aminotransferase increased [Recovering/Resolving]
  - Off label use [Recovered/Resolved]
